FAERS Safety Report 16290578 (Version 1)
Quarter: 2019Q2

REPORT INFORMATION
  Report Type: Spontaneous
  Country: US (occurrence: US)
  Receive Date: 20190508
  Receipt Date: 20190508
  Transmission Date: 20190711
  Serious: Yes (Other)
  Sender: FDA-Public Use
  Company Number: None

PATIENT
  Age: 27 Year
  Sex: Female

DRUGS (2)
  1. VIVITROL INJECTION [Concomitant]
     Dates: start: 20180322, end: 20181023
  2. BUPRENORPHINE/NALAXONE TABLETS [Suspect]
     Active Substance: BUPRENORPHINE HYDROCHLORIDE\NALOXONE HYDROCHLORIDE
     Indication: DRUG DEPENDENCE
     Route: 048
     Dates: start: 20190501, end: 20190508

REACTIONS (8)
  - Dysgeusia [None]
  - Product use complaint [None]
  - Drug ineffective [None]
  - Aptyalism [None]
  - Retching [None]
  - Therapeutic response changed [None]
  - Drug level below therapeutic [None]
  - Drug dependence [None]

NARRATIVE: CASE EVENT DATE: 20190507
